FAERS Safety Report 20533965 (Version 1)
Quarter: 2022Q1

REPORT INFORMATION
  Report Type: Report from Study
  Country: US (occurrence: US)
  Receive Date: 20220301
  Receipt Date: 20220301
  Transmission Date: 20220423
  Serious: Yes (Other)
  Sender: FDA-Public Use
  Company Number: US-JNJFOC-20220143762

PATIENT
  Age: 63 Year
  Sex: Female

DRUGS (3)
  1. MACITENTAN [Suspect]
     Active Substance: MACITENTAN
     Indication: Pulmonary arterial hypertension
     Route: 048
  2. MACITENTAN [Suspect]
     Active Substance: MACITENTAN
     Route: 048
  3. SILDENAFIL CITRATE [Concomitant]
     Active Substance: SILDENAFIL CITRATE

REACTIONS (1)
  - Dyspnoea [Recovering/Resolving]

NARRATIVE: CASE EVENT DATE: 20211201
